FAERS Safety Report 4536706-3 (Version None)
Quarter: 2004Q4

REPORT INFORMATION
  Report Type: 
  Country: None (occurrence: None)
  Receive Date: 20041220
  Receipt Date: 20041206
  Transmission Date: 20050328
  Serious: Yes (Hospitalization)
  Sender: FDA-Public Use
  Company Number: 2004108933

PATIENT
  Age: 69 Year
  Sex: Male
  Weight: 83 kg

DRUGS (3)
  1. ZYVOX [Suspect]
     Indication: ILL-DEFINED DISORDER
     Dosage: 1200 MG (600 MG, TWICE
     Route: 048
     Dates: start: 20041007, end: 20041018
  2. AMOXICILLIN [Suspect]
     Indication: ILL-DEFINED DISORDER
     Dosage: 3000 MG (500 MG, SIX TIMES
     Route: 048
     Dates: start: 20041011, end: 20041018
  3. OFLOXACIN [Concomitant]

REACTIONS (4)
  - CONVULSION [None]
  - CSF PROTEIN INCREASED [None]
  - ELECTROENCEPHALOGRAM ABNORMAL [None]
  - HYPOGLYCAEMIA [None]
